FAERS Safety Report 17814710 (Version 1)
Quarter: 2020Q2

REPORT INFORMATION
  Report Type: Spontaneous
  Country: US (occurrence: US)
  Receive Date: 20200522
  Receipt Date: 20200522
  Transmission Date: 20200714
  Serious: No
  Sender: FDA-Public Use
  Company Number: US-HETERO-HET2020US00530

PATIENT
  Sex: Male
  Weight: 95 kg

DRUGS (1)
  1. INDOMETHACIN. [Suspect]
     Active Substance: INDOMETHACIN
     Indication: ANKLE FRACTURE
     Dosage: 525 MG, QD (7 CAPSULES THREE TIMES A DAY)
     Route: 048
     Dates: start: 20200506, end: 20200508

REACTIONS (8)
  - Vomiting [Recovered/Resolved]
  - Overdose [Unknown]
  - Headache [Recovered/Resolved]
  - Abdominal pain upper [Recovered/Resolved]
  - Discomfort [Recovered/Resolved]
  - Dizziness [Recovered/Resolved]
  - Nausea [Recovered/Resolved]
  - Hypervigilance [Recovered/Resolved]

NARRATIVE: CASE EVENT DATE: 20200506
